FAERS Safety Report 20936609 (Version 1)
Quarter: 2022Q2

REPORT INFORMATION
  Report Type: Spontaneous
  Country: RO (occurrence: RO)
  Receive Date: 20220609
  Receipt Date: 20220609
  Transmission Date: 20220721
  Serious: Yes (Other)
  Sender: FDA-Public Use
  Company Number: RO-BoehringerIngelheim-2022-BI-173738

PATIENT

DRUGS (1)
  1. ALTEPLASE [Suspect]
     Active Substance: ALTEPLASE
     Indication: Thrombolysis
     Route: 065

REACTIONS (2)
  - Hypotension [Recovered/Resolved]
  - Bradycardia [Recovered/Resolved]
